FAERS Safety Report 7040055-1 (Version None)
Quarter: 2010Q4

REPORT INFORMATION
  Report Type: 
  Country: None (occurrence: None)
  Receive Date: 20101012
  Receipt Date: 20100928
  Transmission Date: 20110411
  Serious: Yes (Other)
  Sender: FDA-Public Use
  Company Number: PHHY2010US64610

PATIENT
  Sex: Female

DRUGS (3)
  1. VIVELLE-DOT [Suspect]
     Indication: HORMONE REPLACEMENT THERAPY
     Dosage: 0.1 MG, DAILY PER DAY PATCH
     Route: 062
     Dates: start: 20091001
  2. CHANTIX [Suspect]
     Indication: SMOKING CESSATION THERAPY
     Dosage: 0.5 MG, ONCE A DAY
     Route: 048
     Dates: start: 20100801, end: 20100801
  3. CHANTIX [Suspect]
     Dosage: 1 MG, BID
     Route: 048
     Dates: start: 20100801

REACTIONS (6)
  - ERYTHEMA [None]
  - PRURITUS GENERALISED [None]
  - RASH [None]
  - SKIN BURNING SENSATION [None]
  - SKIN SWELLING [None]
  - SWELLING FACE [None]
